FAERS Safety Report 13375168 (Version 4)
Quarter: 2017Q3

REPORT INFORMATION
  Report Type: Spontaneous
  Country: US (occurrence: US)
  Receive Date: 20170327
  Receipt Date: 20170814
  Transmission Date: 20171127
  Serious: Yes (Other)
  Sender: FDA-Public Use
  Company Number: US-AMGEN-USASP2017043611

PATIENT
  Age: 54 Year
  Sex: Female

DRUGS (2)
  1. ENBREL [Suspect]
     Active Substance: ETANERCEPT
     Indication: PSORIATIC ARTHROPATHY
     Dosage: 50 MG, EVERY FIVE DAYS
     Route: 065
     Dates: start: 201611
  2. ENBREL [Suspect]
     Active Substance: ETANERCEPT
     Indication: OSTEOPOROSIS
     Dosage: 50 MG, EVERY FIVE DAYS
     Route: 065

REACTIONS (10)
  - Injection site pain [Unknown]
  - Wrong technique in product usage process [Unknown]
  - Psoriatic arthropathy [Unknown]
  - Pain [Unknown]
  - Accidental exposure to product [Unknown]
  - Migraine [Not Recovered/Not Resolved]
  - Hypersensitivity [Unknown]
  - Drug effect incomplete [Unknown]
  - Off label use [Unknown]
  - Bedridden [Unknown]

NARRATIVE: CASE EVENT DATE: 201611
